FAERS Safety Report 5627837-5 (Version None)
Quarter: 2008Q1

REPORT INFORMATION
  Report Type: 
  Country: None (occurrence: None)
  Receive Date: 20080215
  Receipt Date: 20080211
  Transmission Date: 20080703
  Serious: Yes (Life-Threatening)
  Sender: FDA-Public Use
  Company Number: FR-ASTRAZENECA-2008CG00228

PATIENT
  Age: 25 Year
  Sex: Female

DRUGS (6)
  1. XYLOCAINE [Suspect]
     Dates: start: 20070716, end: 20070716
  2. PROPOFOL [Suspect]
     Indication: INDUCTION OF ANAESTHESIA
     Route: 042
     Dates: start: 20070716, end: 20070716
  3. HYPNOVEL [Suspect]
     Indication: INDUCTION OF ANAESTHESIA
     Route: 042
     Dates: start: 20070716, end: 20070716
  4. SUFENTANIL CITRATE [Suspect]
     Indication: INDUCTION OF ANAESTHESIA
     Route: 042
     Dates: start: 20070716, end: 20070716
  5. NIMBEX [Suspect]
     Indication: INDUCTION OF ANAESTHESIA
     Route: 042
     Dates: start: 20070716, end: 20070716
  6. CEFAZOLIN [Suspect]
     Indication: ANTIBIOTIC PROPHYLAXIS
     Route: 042
     Dates: start: 20070716, end: 20070716

REACTIONS (3)
  - BRONCHOSPASM [None]
  - GENERALISED ERYTHEMA [None]
  - SHOCK [None]
